FAERS Safety Report 7676466-0 (Version None)
Quarter: 2011Q3

REPORT INFORMATION
  Report Type: 
  Country: None (occurrence: None)
  Receive Date: 20110805
  Receipt Date: 20110727
  Transmission Date: 20111222
  Serious: Yes (Death)
  Sender: FDA-Public Use
  Company Number: US-2011-10528

PATIENT
  Age: 46 Year
  Sex: Female

DRUGS (7)
  1. FLUCONAZOLE [Concomitant]
  2. ACYCLOVIR [Concomitant]
  3. TACROLIMUS [Concomitant]
  4. SIROLIMUS (RAPAMUNE) [Concomitant]
  5. CIPROFLOXACIN (CIPROFLOXACIN LACTATE) [Concomitant]
  6. BUSULFEX [Suspect]
     Indication: STEM CELL TRANSPLANT
     Dosage: 0.8 MG/KG, DAILY DOSE, INTRAVENOUS
     Route: 042
  7. CLOFARABINE (CLOFARABINE) [Suspect]
     Indication: STEM CELL TRANSPLANT
     Dosage: 30 MG/M2, DAILY DOSE, INTRAVENOUS
     Route: 042

REACTIONS (2)
  - ACUTE MYELOID LEUKAEMIA [None]
  - NEOPLASM PROGRESSION [None]
